FAERS Safety Report 4690280-X (Version None)
Quarter: 2005Q2

REPORT INFORMATION
  Report Type: 
  Country: None (occurrence: None)
  Receive Date: 20050615
  Receipt Date: 20030701
  Transmission Date: 20051028
  Serious: Yes (Other)
  Sender: FDA-Public Use
  Company Number: CA-GLAXOSMITHKLINE-B0303447A

PATIENT
  Age: 41 Year
  Sex: Male

DRUGS (2)
  1. ABACAVIR [Suspect]
     Indication: HIV INFECTION
     Route: 065
  2. LAMIVUDINE [Suspect]
     Indication: HIV INFECTION
     Route: 065

REACTIONS (7)
  - DYSPHAGIA [None]
  - MITOCHONDRIAL CYTOPATHY [None]
  - MUSCLE ATROPHY [None]
  - MUSCLE FATIGUE [None]
  - MUSCULAR WEAKNESS [None]
  - MYOSITIS [None]
  - WEIGHT DECREASED [None]
